FAERS Safety Report 26022815 (Version 1)
Quarter: 2025Q4

REPORT INFORMATION
  Report Type: Spontaneous
  Country: EU (occurrence: EU)
  Receive Date: 20251110
  Receipt Date: 20251110
  Transmission Date: 20260118
  Serious: Yes (Hospitalization, Other)
  Sender: ABBVIE
  Company Number: EU-ABBVIE-6531682

PATIENT
  Age: 61 Year
  Sex: Male

DRUGS (6)
  1. VENETOCLAX [Suspect]
     Active Substance: VENETOCLAX
     Indication: Acute myeloid leukaemia
     Dosage: FORM STRENGTH: 200 MILLIGRAM
     Route: 048
     Dates: start: 202510
  2. VENETOCLAX [Suspect]
     Active Substance: VENETOCLAX
     Indication: Acute myeloid leukaemia
     Dosage: FORM STRENGTH: 100 MILLIGRAM
     Route: 048
     Dates: start: 20250507, end: 20250624
  3. VORICONAZOLE [Concomitant]
     Active Substance: VORICONAZOLE
     Indication: Antifungal prophylaxis
     Dates: end: 2025
  4. AMPHOTERICIN B [Suspect]
     Active Substance: AMPHOTERICIN B
     Indication: Mucormycosis
     Route: 065
     Dates: start: 2025
  5. AZACITIDINE [Concomitant]
     Active Substance: AZACITIDINE
     Indication: Acute myeloid leukaemia
     Dosage: 75 MG/M2
     Route: 058
     Dates: start: 20250507
  6. AZACITIDINE [Concomitant]
     Active Substance: AZACITIDINE
     Indication: Acute myeloid leukaemia
     Route: 058
     Dates: start: 202510

REACTIONS (10)
  - Lung abscess [Recovering/Resolving]
  - Glomerular filtration rate decreased [Unknown]
  - Abscess [Recovering/Resolving]
  - Platelet count decreased [Unknown]
  - Pancreatic abscess [Recovering/Resolving]
  - Renal abscess [Recovering/Resolving]
  - Pulmonary mucormycosis [Recovering/Resolving]
  - Neutrophil count decreased [Unknown]
  - Nephropathy toxic [Unknown]
  - Gastrointestinal disorder [Recovering/Resolving]

NARRATIVE: CASE EVENT DATE: 20250101
